FAERS Safety Report 4363236-4 (Version None)
Quarter: 2004Q2

REPORT INFORMATION
  Report Type: 
  Country: None (occurrence: None)
  Receive Date: 20040518
  Receipt Date: 20040430
  Transmission Date: 20050107
  Serious: Yes (Congenital Anomaly)
  Sender: FDA-Public Use
  Company Number: 2003-06-2629

PATIENT
  Age: 2 Month
  Sex: Female
  Weight: 4.3 kg

DRUGS (6)
  1. CLARITIN [Suspect]
     Indication: RHINITIS
     Dosage: 10 MG QD ORAL
     Route: 047
     Dates: start: 19950401, end: 20030602
  2. PLUMICORT INHALATION SOLUTION 800 UG QD [Concomitant]
  3. BAMBUTEROL TABLETS [Concomitant]
  4. SINGULAIR [Concomitant]
  5. SURBRONC TABLETS [Concomitant]
  6. VENTOLINE INHALATION  SOLUTION [Concomitant]

REACTIONS (3)
  - CONGENITAL CYSTIC LUNG [None]
  - DRUG EXPOSURE DURING PREGNANCY [None]
  - PULMONARY MASS [None]
